FAERS Safety Report 21490163 (Version 1)
Quarter: 2022Q4

REPORT INFORMATION
  Report Type: Report from Study
  Country: US (occurrence: US)
  Receive Date: 20221021
  Receipt Date: 20221021
  Transmission Date: 20230113
  Serious: No
  Sender: FDA-Public Use
  Company Number: US-ABBVIE-4137235

PATIENT
  Sex: Male

DRUGS (1)
  1. VENCLEXTA [Suspect]
     Active Substance: VENETOCLAX
     Indication: Chronic myelomonocytic leukaemia
     Dosage: STRENGTH 100 MG??1 TABLET BY MOUTH ONCE DAILY WITH FOOD AND A FULL GLASS OF WATER FOR 14 DAYS ON ...
     Route: 048

REACTIONS (2)
  - Off label use [Unknown]
  - Off label use [Unknown]
